FAERS Safety Report 11429087 (Version 1)
Quarter: 2015Q3

REPORT INFORMATION
  Report Type: Spontaneous
  Country: US (occurrence: US)
  Receive Date: 20150828
  Receipt Date: 20150828
  Transmission Date: 20151125
  Serious: No
  Sender: FDA-Public Use
  Company Number: US-ROCHE-1053649

PATIENT
  Age: 65 Year
  Sex: Female

DRUGS (3)
  1. PEGASYS [Suspect]
     Active Substance: PEGINTERFERON ALFA-2A
     Indication: CHRONIC HEPATITIS C
     Route: 065
     Dates: start: 20120313
  2. RIBAVIRIN. [Suspect]
     Active Substance: RIBAVIRIN
     Indication: CHRONIC HEPATITIS C
     Route: 065
     Dates: start: 20120313
  3. RIBAVIRIN. [Suspect]
     Active Substance: RIBAVIRIN
     Dosage: THERAPY REDUCED
     Route: 065

REACTIONS (11)
  - Weight decreased [Unknown]
  - Decreased appetite [Unknown]
  - Rash [Recovering/Resolving]
  - Anaemia [Unknown]
  - Fatigue [Unknown]
  - Eye pain [Unknown]
  - Headache [Unknown]
  - Viral load increased [Unknown]
  - Asthenia [Unknown]
  - Sinus headache [Unknown]
  - Sinus disorder [Unknown]

NARRATIVE: CASE EVENT DATE: 201207
